FAERS Safety Report 7771140-4 (Version None)
Quarter: 2011Q3

REPORT INFORMATION
  Report Type: 
  Country: None (occurrence: None)
  Receive Date: 20110922
  Receipt Date: 20110913
  Transmission Date: 20111222
  Serious: Yes (Hospitalization)
  Sender: FDA-Public Use
  Company Number: US-GENZYME-US-SHR-04-021353

PATIENT
  Sex: Male
  Weight: 109 kg

DRUGS (7)
  1. SOLU-MEDROL [Concomitant]
     Indication: CHEMOTHERAPY CYTOKINE PROPHYLAXIS
     Dosage: 1 G, QDX3
     Route: 042
     Dates: start: 20040202, end: 20040204
  2. BENADRYL ^ACHE^ [Concomitant]
     Indication: PRODUCT USED FOR UNKNOWN INDICATION
     Dosage: 50 MG, QDX5
     Route: 048
     Dates: start: 20040202, end: 20040206
  3. FLONASE [Concomitant]
     Indication: RHINITIS ALLERGIC
  4. CAMPATH [Suspect]
     Indication: RELAPSING-REMITTING MULTIPLE SCLEROSIS
     Dosage: 24 MG, QDX5
     Route: 042
     Dates: start: 20040202, end: 20040206
  5. CLARITIN /USA/ [Concomitant]
     Indication: PRODUCT USED FOR UNKNOWN INDICATION
     Dosage: 4 TABS QD
     Route: 048
     Dates: start: 20040202, end: 20040206
  6. MOTRIN [Concomitant]
     Indication: PRODUCT USED FOR UNKNOWN INDICATION
     Dosage: 400 MG, QDX5
     Route: 048
     Dates: start: 20040202, end: 20040206
  7. CLARINEX /USA/ [Concomitant]
     Indication: RHINITIS ALLERGIC

REACTIONS (2)
  - PULMONARY EMBOLISM [None]
  - SEPTIC EMBOLUS [None]
